FAERS Safety Report 20476321 (Version 2)
Quarter: 2022Q1

REPORT INFORMATION
  Report Type: Spontaneous
  Country: CN (occurrence: None)
  Receive Date: 20220215
  Receipt Date: 20220222
  Transmission Date: 20220423
  Serious: Yes (Other)
  Sender: FDA-Public Use
  Company Number: 2022A069821

PATIENT
  Sex: Male

DRUGS (1)
  1. SEROQUEL [Suspect]
     Active Substance: QUETIAPINE FUMARATE
     Route: 048
     Dates: start: 2007

REACTIONS (8)
  - Headache [Recovered/Resolved]
  - Dysstasia [Recovered/Resolved]
  - Fear [Recovered/Resolved]
  - Toxicity to various agents [Recovered/Resolved]
  - Head injury [Recovered/Resolved]
  - Priapism [Recovered/Resolved]
  - Tachycardia [Recovered/Resolved]
  - Feeling abnormal [Recovered/Resolved]
